FAERS Safety Report 6920060-3 (Version None)
Quarter: 2010Q3

REPORT INFORMATION
  Report Type: 
  Country: None (occurrence: None)
  Receive Date: 20100811
  Receipt Date: 20100730
  Transmission Date: 20110219
  Serious: Yes (Other)
  Sender: FDA-Public Use
  Company Number: US-PFIZER INC-2010082893

PATIENT
  Sex: Female

DRUGS (2)
  1. LYRICA [Suspect]
     Dosage: UNK
  2. FENTANYL [Suspect]
     Dosage: UNK

REACTIONS (7)
  - BLOOD POTASSIUM DECREASED [None]
  - CHOKING [None]
  - SUICIDAL IDEATION [None]
  - URINARY RETENTION [None]
  - WEIGHT INCREASED [None]
  - WHEEZING [None]
  - WITHDRAWAL SYNDROME [None]
